FAERS Safety Report 7630530-0 (Version None)
Quarter: 2011Q3

REPORT INFORMATION
  Report Type: 
  Country: None (occurrence: None)
  Receive Date: 20110722
  Receipt Date: 20110713
  Transmission Date: 20111222
  Serious: Yes (Other)
  Sender: FDA-Public Use
  Company Number: PHHY2011US06347

PATIENT
  Sex: Female

DRUGS (6)
  1. GILENYA [Suspect]
     Indication: MULTIPLE SCLEROSIS
     Dosage: 0.5 MG, QD
     Route: 048
     Dates: start: 20110103, end: 20110307
  2. MIRAPEX [Concomitant]
     Indication: RESTLESS LEGS SYNDROME
     Dosage: 0.5 MG, DAILY
     Dates: start: 20100517
  3. ZOLPIDEM [Concomitant]
     Indication: INSOMNIA
     Dosage: 10 MG, UNK
     Dates: start: 20110221
  4. VITAMIN D [Concomitant]
  5. ZOLOFT [Concomitant]
     Indication: DEPRESSION
     Dosage: 100 MG, DAILY
  6. CALCIUM CARBONATE [Concomitant]
     Dosage: 1 DF, DAILY

REACTIONS (6)
  - INSOMNIA [None]
  - ORAL HERPES [None]
  - HYPERSENSITIVITY [None]
  - URTICARIA [None]
  - RASH [None]
  - HERPES ZOSTER [None]
